FAERS Safety Report 21971167 (Version 1)
Quarter: 2023Q1

REPORT INFORMATION
  Report Type: Spontaneous
  Country: GB (occurrence: None)
  Receive Date: 20230209
  Receipt Date: 20230209
  Transmission Date: 20230418
  Serious: Yes (Other)
  Sender: FDA-Public Use
  Company Number: 2023A028534

PATIENT
  Age: 73 Year
  Sex: Female
  Weight: 65.8 kg

DRUGS (9)
  1. DAPAGLIFLOZIN [Suspect]
     Active Substance: DAPAGLIFLOZIN
     Indication: Diabetes mellitus
     Dosage: 5.0MG UNKNOWN
     Route: 048
  2. ASPIRIN [Concomitant]
     Active Substance: ASPIRIN
     Dosage: 75
     Dates: start: 20221125
  3. EMPAGLIFLOZIN [Concomitant]
     Active Substance: EMPAGLIFLOZIN
     Dosage: 1 TABLET ONCE DAILY
     Dates: start: 20221109
  4. LETROZOLE [Concomitant]
     Active Substance: LETROZOLE
     Dosage: 2.5
     Dates: start: 20221125
  5. LEVEMIR [Concomitant]
     Active Substance: INSULIN DETEMIR
     Dosage: USE AS DIRECTED
     Dates: start: 20230123
  6. METFORMIN [Concomitant]
     Active Substance: METFORMIN HYDROCHLORIDE
     Dosage: 2 IN THE MORNING AND IN THE EVENING
     Dates: start: 20221125
  7. PERINDOPRIL ERBUMINE [Concomitant]
     Active Substance: PERINDOPRIL ERBUMINE
     Dosage: 4
     Dates: start: 20221125
  8. ROSUVASTATIN [Concomitant]
     Active Substance: ROSUVASTATIN
     Dosage: 10
     Dates: start: 20221125
  9. STRIVIT-D3 [Concomitant]
     Dosage: 800
     Dates: start: 20221125

REACTIONS (2)
  - Hypotension [Recovered/Resolved]
  - Heart rate increased [Unknown]

NARRATIVE: CASE EVENT DATE: 20230130
